FAERS Safety Report 4401224-X (Version None)
Quarter: 2004Q3

REPORT INFORMATION
  Report Type: 
  Country: None (occurrence: None)
  Receive Date: 20040907
  Receipt Date: 20040106
  Transmission Date: 20050211
  Serious: No
  Sender: FDA-Public Use
  Company Number: US-BRISTOL-MYERS SQUIBB COMPANY-12472130

PATIENT
  Sex: Female

DRUGS (12)
  1. COUMADIN [Suspect]
     Indication: CEREBROVASCULAR ACCIDENT
     Route: 048
  2. SIMETHICONE [Concomitant]
  3. TOPROL-XL [Concomitant]
  4. LIPITOR [Concomitant]
  5. MINOXIDIL [Concomitant]
  6. TIAZAC [Concomitant]
  7. VALIUM [Concomitant]
  8. ACIPHEX [Concomitant]
  9. LIQUID TEARS [Concomitant]
  10. OCUFLOX [Concomitant]
  11. ALBUTEROL [Concomitant]
  12. ALLEGRA [Concomitant]

REACTIONS (2)
  - CONTUSION [None]
  - PROTHROMBIN TIME SHORTENED [None]
